FAERS Safety Report 6914060-7 (Version None)
Quarter: 2010Q3

REPORT INFORMATION
  Report Type: 
  Country: None (occurrence: None)
  Receive Date: 20100809
  Receipt Date: 20100803
  Transmission Date: 20110219
  Serious: Yes (Death, Other)
  Sender: FDA-Public Use
  Company Number: PHHY2010GB09166

PATIENT
  Sex: Male
  Weight: 79.9 kg

DRUGS (2)
  1. CLOZARIL [Suspect]
     Indication: SCHIZOPHRENIA
     Dosage: UNK
     Dates: start: 19970523
  2. CLOZARIL [Suspect]
     Dosage: 400 MG/DAY
     Route: 048
     Dates: start: 20020101

REACTIONS (16)
  - ARTERIOSCLEROSIS [None]
  - CEREBRAL INFARCTION [None]
  - CIRCULATORY COLLAPSE [None]
  - CONTUSION [None]
  - DIZZINESS [None]
  - EMPHYSEMA [None]
  - EPISTAXIS [None]
  - FALL [None]
  - HEAD INJURY [None]
  - INTESTINAL DILATATION [None]
  - MALAISE [None]
  - PANCREATIC DISORDER [None]
  - PERIORBITAL HAEMATOMA [None]
  - PULMONARY EMBOLISM [None]
  - PULMONARY VASCULAR DISORDER [None]
  - RENAL CYST [None]
